FAERS Safety Report 9033165 (Version 3)
Quarter: 2013Q4

REPORT INFORMATION
  Report Type: Report from Study
  Country: JP (occurrence: JP)
  Receive Date: 20130128
  Receipt Date: 20131003
  Transmission Date: 20140711
  Serious: Yes (Hospitalization)
  Sender: FDA-Public Use
  Company Number: JP-ROCHE-1181815

PATIENT
  Age: 60 Year
  Sex: Male
  Weight: 68.4 kg

DRUGS (12)
  1. RIBAVIRIN [Suspect]
     Indication: CHRONIC HEPATITIS C
     Dosage: DATE OF LAST DOSE ADMINISTERED ON 19/NOV/2012
     Route: 048
     Dates: start: 20120606
  2. RIBAVIRIN [Suspect]
     Route: 048
     Dates: start: 20120717
  3. RIBAVIRIN [Suspect]
     Route: 048
     Dates: start: 20120727
  4. PEGINTERFERON ALFA-2B [Suspect]
     Indication: CHRONIC HEPATITIS C
     Dosage: DATE OF LAST DOSE ADMINISTERED ON 13/NOV/2012
     Route: 058
     Dates: start: 20120606
  5. AMLODIPINE BESILATE [Concomitant]
  6. PARIET [Concomitant]
     Route: 065
  7. PARIET [Concomitant]
     Route: 065
     Dates: start: 20120614
  8. REBAMIPIDE [Concomitant]
     Route: 065
  9. URSO [Concomitant]
  10. ALLELOCK [Concomitant]
  11. MYSLEE [Concomitant]
  12. DEPAS [Concomitant]

REACTIONS (23)
  - Diarrhoea [Recovered/Resolved]
  - Anal haemorrhage [Recovered/Resolved]
  - Gastritis [Recovered/Resolved]
  - Headache [Recovered/Resolved]
  - Hypoaesthesia [Recovered/Resolved]
  - Blister [Recovered/Resolved]
  - Seborrhoeic dermatitis [Recovered/Resolved]
  - Stomatitis [Recovered/Resolved]
  - Henoch-Schonlein purpura [Recovered/Resolved]
  - Conjunctivitis [Recovered/Resolved]
  - Nausea [Recovered/Resolved]
  - Pruritus [Recovered/Resolved]
  - Folliculitis [Recovered/Resolved]
  - Dyshidrotic eczema [Recovered/Resolved]
  - Abdominal pain [Recovered/Resolved]
  - Arthralgia [Recovered/Resolved]
  - Palpitations [Recovered/Resolved]
  - Retinopathy [Recovered/Resolved]
  - Decreased appetite [Recovered/Resolved]
  - Injection site pruritus [Recovered/Resolved]
  - Macule [Recovered/Resolved]
  - Malaise [Recovered/Resolved]
  - Pyrexia [Recovered/Resolved]
